FAERS Safety Report 5293433-5 (Version None)
Quarter: 2007Q2

REPORT INFORMATION
  Report Type: 
  Country: None (occurrence: None)
  Receive Date: 20070411
  Receipt Date: 20070402
  Transmission Date: 20071010
  Serious: Yes (Other)
  Sender: FDA-Public Use
  Company Number: DE-ABBOTT-07P-062-0363807-00

PATIENT
  Sex: Male

DRUGS (7)
  1. ERGENYL CHRONO TABLETS [Suspect]
     Indication: EPILEPSY
     Route: 048
     Dates: start: 20040101, end: 20070201
  2. LEVETIRACETAM [Concomitant]
     Indication: EPILEPSY
     Route: 048
     Dates: start: 20051019
  3. PHENOBARBITAL TAB [Concomitant]
     Indication: EPILEPSY
     Route: 048
     Dates: start: 19940101
  4. CLONAZEPAM [Concomitant]
     Indication: DRUG USE FOR UNKNOWN INDICATION
     Route: 048
  5. CARBAMAZEPINE [Concomitant]
     Indication: DRUG USE FOR UNKNOWN INDICATION
  6. VIGABATRIN [Concomitant]
     Indication: DRUG USE FOR UNKNOWN INDICATION
  7. GABAPENTIN [Concomitant]
     Indication: DRUG USE FOR UNKNOWN INDICATION

REACTIONS (3)
  - CONFUSIONAL STATE [None]
  - ERYTHEMA [None]
  - PSEUDOLYMPHOMA [None]
